FAERS Safety Report 23185064 (Version 1)
Quarter: 2023Q4

REPORT INFORMATION
  Report Type: Spontaneous
  Country: US (occurrence: US)
  Receive Date: 20231115
  Receipt Date: 20231115
  Transmission Date: 20240110
  Serious: Yes (Hospitalization)
  Sender: FDA-Public Use
  Company Number: US-BAXTER-2023BAX035380

PATIENT
  Age: 50 Year
  Sex: Female

DRUGS (1)
  1. EXTRANEAL [Suspect]
     Active Substance: CALCIUM CHLORIDE\ICODEXTRIN\MAGNESIUM CHLORIDE\SODIUM CHLORIDE\SODIUM LACTATE
     Dosage: 1.5 LITERS PER DAY
     Route: 033

REACTIONS (4)
  - Irritable bowel syndrome [Unknown]
  - Abdominal pain upper [Unknown]
  - Abdominal distension [Unknown]
  - Discomfort [Unknown]

NARRATIVE: CASE EVENT DATE: 20231107
